FAERS Safety Report 4595885-2 (Version None)
Quarter: 2005Q1

REPORT INFORMATION
  Report Type: 
  Country: None (occurrence: None)
  Receive Date: 20050224
  Receipt Date: 20050215
  Transmission Date: 20050727
  Serious: Yes (Other)
  Sender: FDA-Public Use
  Company Number: 2005-01-1572

PATIENT
  Age: 63 Year
  Sex: Female

DRUGS (10)
  1. INTRON A [Suspect]
     Indication: HEPATITIS C
     Dosage: SEE IMAGE
     Route: 030
     Dates: start: 20040816, end: 20040820
  2. INTRON A [Suspect]
     Indication: HEPATITIS C
     Dosage: SEE IMAGE
     Route: 030
     Dates: start: 20040823, end: 20050110
  3. REBETOL [Suspect]
     Indication: HEPATITIS C
     Dosage: SEE IMAGE
     Route: 048
     Dates: start: 20040816, end: 20040914
  4. REBETOL [Suspect]
     Indication: HEPATITIS C
     Dosage: SEE IMAGE
     Route: 048
     Dates: start: 20040915, end: 20050111
  5. FAMOTIDINE [Concomitant]
  6. METFORMIN HCL [Concomitant]
  7. SUCRALFATE [Concomitant]
  8. ZOLPIDEM TARTRATE [Concomitant]
  9. SODIUM PICOSULFATE [Concomitant]
  10. MAGNESIUM OXIDE [Concomitant]

REACTIONS (3)
  - BRONCHIECTASIS [None]
  - HAEMOPTYSIS [None]
  - PLATELET COUNT ABNORMAL [None]
